FAERS Safety Report 8621788-X (Version None)
Quarter: 2012Q3

REPORT INFORMATION
  Report Type: 
  Country: None (occurrence: None)
  Receive Date: 20120821
  Receipt Date: 20120821
  Transmission Date: 20120928
  Serious: Yes (Life-Threatening)
  Sender: FDA-Public Use
  Company Number: None

PATIENT
  Age: 40 Year
  Sex: Female
  Weight: 61.2356 kg

DRUGS (1)
  1. MICONAZOLE NITRATE [Suspect]
     Indication: PRURITUS
     Dosage: PEA SIZED ONCE TOP
     Route: 061
     Dates: start: 20120817, end: 20120817

REACTIONS (2)
  - CHEST DISCOMFORT [None]
  - DYSPNOEA [None]
